FAERS Safety Report 6519084-X (Version None)
Quarter: 2009Q4

REPORT INFORMATION
  Report Type: 
  Country: None (occurrence: None)
  Receive Date: 20091228
  Receipt Date: 20091216
  Transmission Date: 20100525
  Serious: Yes (Other)
  Sender: FDA-Public Use
  Company Number: PL-ROCHE-675416

PATIENT
  Age: 42 Year
  Sex: Female

DRUGS (9)
  1. TRASTUZUMAB [Suspect]
     Route: 065
     Dates: start: 20040519
  2. TRASTUZUMAB [Suspect]
     Dosage: DOSE: 2 MG/KG BODY WEIGHT AT WEEKLY INTERVALS
     Route: 065
     Dates: end: 20040901
  3. TRASTUZUMAB [Suspect]
     Route: 065
     Dates: end: 20080401
  4. CAPECITABINE [Suspect]
     Dosage: DOSE: 2000 MG DAILY FOR 14 DAYS IN CYCLES EVERY 3 WEEKS
     Route: 065
     Dates: start: 20080601
  5. CAPECITABINE [Suspect]
     Dosage: DOSE REDUCED
     Route: 065
     Dates: start: 20080801
  6. LAPATINIB [Suspect]
     Route: 065
     Dates: start: 20080601
  7. CISPLATIN [Concomitant]
     Dates: start: 20040519, end: 20040918
  8. ANASTROZOLE [Concomitant]
     Dates: start: 20071001
  9. GOSERELIN [Concomitant]

REACTIONS (4)
  - DIARRHOEA [None]
  - MALIGNANT NEOPLASM PROGRESSION [None]
  - NAUSEA [None]
  - PALMAR-PLANTAR ERYTHRODYSAESTHESIA SYNDROME [None]
